FAERS Safety Report 5480017-9 (Version None)
Quarter: 2007Q4

REPORT INFORMATION
  Report Type: 
  Country: None (occurrence: None)
  Receive Date: 20071008
  Receipt Date: 20070926
  Transmission Date: 20080405
  Serious: Yes (Other)
  Sender: FDA-Public Use
  Company Number: IN-PFIZER INC-2007066938

PATIENT
  Sex: Male

DRUGS (1)
  1. CLINDAMYCIN HCL [Suspect]
     Indication: DIABETIC FOOT
     Route: 030
     Dates: start: 20070810, end: 20070810

REACTIONS (4)
  - DYSPNOEA [None]
  - PARAESTHESIA [None]
  - PRURITUS [None]
  - RESTLESSNESS [None]
